FAERS Safety Report 5258397-9 (Version None)
Quarter: 2007Q1

REPORT INFORMATION
  Report Type: 
  Country: None (occurrence: None)
  Receive Date: 20070306
  Receipt Date: 20070306
  Transmission Date: 20070707
  Serious: Yes (Hospitalization)
  Sender: FDA-Public Use
  Company Number: None

PATIENT
  Age: 56 Year
  Sex: Male
  Weight: 117 kg

DRUGS (3)
  1. NAPROXEN [Suspect]
     Indication: BACK PAIN
     Dosage: 375 MG PO BID
     Route: 048
  2. FLEXERIL [Concomitant]
  3. TYLENOL [Concomitant]

REACTIONS (6)
  - ABDOMINAL PAIN UPPER [None]
  - COLONIC POLYP [None]
  - DECREASED APPETITE [None]
  - DIZZINESS [None]
  - FAECES DISCOLOURED [None]
  - HAEMATEMESIS [None]
